FAERS Safety Report 15529598 (Version 2)
Quarter: 2019Q3

REPORT INFORMATION
  Report Type: Spontaneous
  Country: US (occurrence: US)
  Receive Date: 20181020
  Receipt Date: 20190812
  Transmission Date: 20191004
  Serious: No
  Sender: FDA-Public Use
  Company Number: PHEH2018US043940

PATIENT
  Sex: Female

DRUGS (1)
  1. TYKERB [Suspect]
     Active Substance: LAPATINIB DITOSYLATE
     Indication: PRODUCT USED FOR UNKNOWN INDICATION
     Dosage: 1000 MG, QD
     Route: 048
     Dates: start: 20180627

REACTIONS (5)
  - Constipation [Not Recovered/Not Resolved]
  - Pruritus [Unknown]
  - Blister [Unknown]
  - Skin disorder [Unknown]
  - Erythema [Unknown]
